FAERS Safety Report 7443386-6 (Version None)
Quarter: 2011Q2

REPORT INFORMATION
  Report Type: 
  Country: None (occurrence: None)
  Receive Date: 20110428
  Receipt Date: 20110119
  Transmission Date: 20111010
  Serious: Yes (Hospitalization)
  Sender: FDA-Public Use
  Company Number: FI-ASTRAZENECA-2010SE59788

PATIENT
  Age: 758 Month
  Sex: Female

DRUGS (7)
  1. PREDNISOLONE [Concomitant]
     Route: 065
  2. FASLODEX [Suspect]
     Indication: BREAST CANCER METASTATIC
     Route: 030
     Dates: start: 20100921, end: 20101201
  3. OXYNORM [Concomitant]
     Route: 065
  4. OMEPRAZOLE [Concomitant]
     Route: 065
  5. FASLODEX [Suspect]
     Dosage: ADDITIONAL DOSE OF 500 MG 2 WEEKS AFTER THE INTRODUCTION OF FASLODEX
     Route: 030
     Dates: start: 20100921, end: 20101201
  6. OXYCONTIN [Concomitant]
     Route: 065
  7. BONDRONAT [Concomitant]
     Route: 065

REACTIONS (3)
  - ASPARTATE AMINOTRANSFERASE INCREASED [None]
  - HEPATIC FAILURE [None]
  - ALANINE AMINOTRANSFERASE INCREASED [None]
